FAERS Safety Report 6811904-4 (Version None)
Quarter: 2010Q3

REPORT INFORMATION
  Report Type: 
  Country: None (occurrence: None)
  Receive Date: 20100701
  Receipt Date: 20100620
  Transmission Date: 20110219
  Serious: Yes (Other)
  Sender: FDA-Public Use
  Company Number: DE-JNJFOC-20100607630

PATIENT

DRUGS (1)
  1. MEBENDAZOLE [Suspect]
     Indication: ECHINOCOCCIASIS
     Route: 065

REACTIONS (2)
  - CHOLANGITIS [None]
  - GLOMERULONEPHRITIS [None]
